FAERS Safety Report 9025191 (Version 2)
Quarter: 2013Q1

REPORT INFORMATION
  Report Type: Spontaneous
  Country: US (occurrence: US)
  Receive Date: 20130122
  Receipt Date: 20130204
  Transmission Date: 20140127
  Serious: Yes (Other)
  Sender: FDA-Public Use
  Company Number: CHPA2013US001142

PATIENT
  Sex: Female

DRUGS (2)
  1. EX-LAX (SENNOSIDES) [Suspect]
     Indication: LAXATIVE SUPPORTIVE CARE
     Dosage: 4 OR 5 DF PER DAY
     Route: 048
     Dates: start: 1935
  2. FEEN-A-MINT [Concomitant]
     Indication: LAXATIVE SUPPORTIVE CARE
     Dosage: UNK
     Dates: start: 1935

REACTIONS (5)
  - Diverticulitis [Unknown]
  - Colon injury [Unknown]
  - Functional gastrointestinal disorder [Unknown]
  - Incorrect dose administered [Unknown]
  - Overdose [Unknown]
